FAERS Safety Report 20222345 (Version 1)
Quarter: 2021Q4

REPORT INFORMATION
  Report Type: Spontaneous
  Country: IT (occurrence: IT)
  Receive Date: 20211223
  Receipt Date: 20211223
  Transmission Date: 20220303
  Serious: Yes (Other)
  Sender: FDA-Public Use
  Company Number: IT-MYLANLABS-2021M1095070

PATIENT
  Age: 38 Year
  Sex: Male

DRUGS (3)
  1. PREDNISONE [Suspect]
     Active Substance: PREDNISONE
     Indication: Gastroenteritis eosinophilic
     Dosage: 50 MILLIGRAM, QD
     Route: 048
  2. PREDNISONE [Suspect]
     Active Substance: PREDNISONE
     Indication: Sinusitis
     Dosage: 7.5 MILLIGRAM, QD
     Route: 048
     Dates: start: 202003
  3. PREDNISONE [Suspect]
     Active Substance: PREDNISONE
     Indication: Asthma

REACTIONS (4)
  - Drug dependence [Unknown]
  - Drug withdrawal syndrome [Unknown]
  - Eosinophilia [Recovering/Resolving]
  - Gastroenteritis [Recovering/Resolving]
